FAERS Safety Report 12607978 (Version 2)
Quarter: 2016Q3

REPORT INFORMATION
  Report Type: Spontaneous
  Country: JP (occurrence: JP)
  Receive Date: 20160729
  Receipt Date: 20160809
  Transmission Date: 20161109
  Serious: Yes (Life-Threatening, Hospitalization)
  Sender: FDA-Public Use
  Company Number: PHJP2016JP009520

PATIENT
  Age: 71 Year
  Sex: Male

DRUGS (15)
  1. STALEVO [Suspect]
     Active Substance: CARBIDOPA\ENTACAPONE\LEVODOPA
     Dosage: 1 DF, (CARBIDOPA 5 MG/ ENTACAPONE 100 MG/ LEVODOPA 50 MG), TID
     Route: 048
     Dates: start: 20160329, end: 20160411
  2. BI SIFROL [Concomitant]
     Active Substance: PRAMIPEXOLE
     Indication: PARKINSON^S DISEASE
     Dosage: 1.5 MG, QD
     Route: 048
     Dates: start: 20160411
  3. CYMBALTA [Concomitant]
     Active Substance: DULOXETINE HYDROCHLORIDE
     Indication: PRODUCT USED FOR UNKNOWN INDICATION
     Dosage: UNK
     Route: 065
     Dates: start: 20160506
  4. MENESIT [Concomitant]
     Active Substance: CARBIDOPA\LEVODOPA
     Dosage: 4.5 DF, QD
     Route: 048
     Dates: start: 20160411
  5. NEUPRO [Concomitant]
     Active Substance: ROTIGOTINE
     Indication: PARKINSON^S DISEASE
     Dosage: 4.5 MG, QD
     Route: 062
     Dates: start: 20160411
  6. PARLODEL [Concomitant]
     Active Substance: BROMOCRIPTINE MESYLATE
     Indication: PARKINSON^S DISEASE
     Dosage: 5 MG, TID
     Route: 048
     Dates: start: 20151230, end: 20160310
  7. STALEVO [Suspect]
     Active Substance: CARBIDOPA\ENTACAPONE\LEVODOPA
     Indication: PARKINSON^S DISEASE
     Dosage: 1 DF (CARBIDOPA 10 MG/ ENTACAPONE 100 MG/ LEVODOPA 100 MG), TID
     Route: 048
     Dates: start: 20151230, end: 20160329
  8. MENESIT [Concomitant]
     Active Substance: CARBIDOPA\LEVODOPA
     Indication: PARKINSON^S DISEASE
     Dosage: 1 DF, TID
     Route: 048
     Dates: start: 20151230
  9. REQUIP [Concomitant]
     Active Substance: ROPINIROLE HYDROCHLORIDE
     Indication: PARKINSON^S DISEASE
     Dosage: 2 MG, QD
     Route: 048
     Dates: start: 20160311
  10. MENESIT [Concomitant]
     Active Substance: CARBIDOPA\LEVODOPA
     Dosage: 4.5 DF, QD
     Route: 048
  11. PARLODEL [Concomitant]
     Active Substance: BROMOCRIPTINE MESYLATE
     Dosage: 7.5 MG, UNK
     Route: 048
     Dates: start: 20160311, end: 20160505
  12. NOURIAST [Concomitant]
     Active Substance: ISTRADEFYLLINE
     Indication: PARKINSON^S DISEASE
     Dosage: 0.5 MG, QD
     Route: 065
     Dates: start: 20160611
  13. STALEVO [Suspect]
     Active Substance: CARBIDOPA\ENTACAPONE\LEVODOPA
     Dosage: UNK
     Route: 048
     Dates: end: 20160506
  14. SYMMETREL [Suspect]
     Active Substance: AMANTADINE HYDROCHLORIDE
     Indication: PARKINSON^S DISEASE
     Dosage: 50 MG, BID
     Route: 048
     Dates: start: 20151230
  15. BI SIFROL [Concomitant]
     Active Substance: PRAMIPEXOLE
     Dosage: 2 MG, QD
     Route: 048
     Dates: start: 20160506

REACTIONS (6)
  - Movement disorder [Unknown]
  - Dysstasia [Unknown]
  - Hypotonia [Not Recovered/Not Resolved]
  - Hypokinesia [Not Recovered/Not Resolved]
  - Asthenia [Unknown]
  - Bradykinesia [Not Recovered/Not Resolved]

NARRATIVE: CASE EVENT DATE: 20160129
